FAERS Safety Report 5075693-9 (Version None)
Quarter: 2006Q3

REPORT INFORMATION
  Report Type: 
  Country: None (occurrence: None)
  Receive Date: 20060809
  Receipt Date: 20060731
  Transmission Date: 20061208
  Serious: Yes (Other)
  Sender: FDA-Public Use
  Company Number: FR-AVENTIS-200612688FR

PATIENT
  Age: 76 Year
  Sex: Female

DRUGS (7)
  1. KETEK [Suspect]
     Indication: BRONCHITIS
     Route: 048
     Dates: start: 20060724, end: 20060726
  2. SINGULAIR [Concomitant]
     Indication: ASTHMA
     Route: 048
  3. SOLUPRED [Concomitant]
     Route: 048
     Dates: start: 20060720, end: 20060723
  4. AIROMIR [Concomitant]
     Indication: ASTHMA
     Route: 055
  5. DOLIPRANE [Concomitant]
     Route: 048
     Dates: start: 20060720, end: 20060720
  6. TENSTATEN [Concomitant]
     Indication: HYPERTENSION
     Route: 048
  7. AROMASIN [Concomitant]
     Indication: BREAST CANCER

REACTIONS (2)
  - VISION BLURRED [None]
  - VISUAL ACUITY REDUCED [None]
